FAERS Safety Report 10446709 (Version 1)
Quarter: 2014Q3

REPORT INFORMATION
  Report Type: Spontaneous
  Country: DE (occurrence: DE)
  Receive Date: 20140911
  Receipt Date: 20140911
  Transmission Date: 20150326
  Serious: Yes (Death, Life-Threatening, Hospitalization, Other)
  Sender: FDA-Public Use
  Company Number: DE-AUROBINDO-AUR-APL-2014-09565

PATIENT
  Age: 64 Year
  Sex: Male
  Weight: 80 kg

DRUGS (4)
  1. SITAGLIPTIN [Concomitant]
     Active Substance: SITAGLIPTIN
     Indication: DIABETES MELLITUS
     Dosage: UNK
     Route: 065
  2. SUNITINIB MALATE [Suspect]
     Active Substance: SUNITINIB MALATE
     Indication: RENAL CELL CARCINOMA
     Dosage: 50 MG, UNK
     Route: 048
     Dates: start: 20131115, end: 20131208
  3. MARCUMAR [Concomitant]
     Active Substance: PHENPROCOUMON
     Indication: ATRIAL FIBRILLATION
     Dosage: UNK
     Route: 065
  4. METFORMIN [Suspect]
     Active Substance: METFORMIN HYDROCHLORIDE
     Indication: DIABETES MELLITUS
     Dosage: UNK
     Route: 065

REACTIONS (14)
  - Lactic acidosis [Unknown]
  - Thrombotic thrombocytopenic purpura [Unknown]
  - Sepsis [Fatal]
  - Haemolytic uraemic syndrome [Unknown]
  - Cardiac arrest [Unknown]
  - Sinus tachycardia [Unknown]
  - Acute hepatic failure [Fatal]
  - Pneumonia [Unknown]
  - Encephalopathy [Unknown]
  - Renal failure acute [Fatal]
  - Aortic valve incompetence [Unknown]
  - Hyperthyroidism [Unknown]
  - Enteritis infectious [Unknown]
  - Multi-organ failure [Fatal]

NARRATIVE: CASE EVENT DATE: 20131208
